FAERS Safety Report 13150501 (Version 5)
Quarter: 2018Q1

REPORT INFORMATION
  Report Type: Report from Study
  Country: US (occurrence: US)
  Receive Date: 20170124
  Receipt Date: 20180108
  Transmission Date: 20180508
  Serious: No
  Sender: FDA-Public Use
  Company Number: US-AMGEN-USASL2017006673

PATIENT
  Age: 69 Year
  Sex: Female
  Weight: 105.21 kg

DRUGS (2)
  1. REPATHA [Suspect]
     Active Substance: EVOLOCUMAB
     Indication: HYPERLIPIDAEMIA
     Dosage: UNK
     Route: 065
  2. REPATHA [Suspect]
     Active Substance: EVOLOCUMAB
     Indication: BLOOD CHOLESTEROL INCREASED
     Dosage: 140 MG, Q2WK
     Route: 065
     Dates: start: 20160923

REACTIONS (4)
  - Injection site haemorrhage [Unknown]
  - Injection site discomfort [Unknown]
  - Drug dose omission [Unknown]
  - Headache [Unknown]

NARRATIVE: CASE EVENT DATE: 2016
